FAERS Safety Report 7145619-2 (Version None)
Quarter: 2010Q4

REPORT INFORMATION
  Report Type: 
  Country: None (occurrence: None)
  Receive Date: 20101208
  Receipt Date: 20100706
  Transmission Date: 20110411
  Serious: No
  Sender: FDA-Public Use
  Company Number: US-ABBOTT-10P-163-0656459-00

PATIENT
  Age: 45 Year
  Sex: Male

DRUGS (1)
  1. ERYTHROMYCIN ESTOLATE [Suspect]
     Indication: PRODUCT USED FOR UNKNOWN INDICATION
     Dates: start: 19950101, end: 19950101

REACTIONS (5)
  - ERYTHEMA [None]
  - FEELING ABNORMAL [None]
  - HEAT RASH [None]
  - OEDEMA [None]
  - RASH [None]
